FAERS Safety Report 10449216 (Version 1)
Quarter: 2014Q3

REPORT INFORMATION
  Report Type: Spontaneous
  Country: US (occurrence: None)
  Receive Date: 20140911
  Receipt Date: 20140911
  Transmission Date: 20150326
  Serious: No
  Sender: FDA-Public Use
  Company Number: None

PATIENT

DRUGS (1)
  1. ANTI-FUNGAL POWDER SPRAY [Suspect]
     Active Substance: TOLNAFTATE

REACTIONS (3)
  - Genital pain [None]
  - Genital erythema [None]
  - Application site hypersensitivity [None]

NARRATIVE: CASE EVENT DATE: 20140801
